FAERS Safety Report 19014955 (Version 2)
Quarter: 2021Q2

REPORT INFORMATION
  Report Type: Spontaneous
  Country: US (occurrence: US)
  Receive Date: 20210317
  Receipt Date: 20210405
  Transmission Date: 20210717
  Serious: No
  Sender: FDA-Public Use
  Company Number: US-AMGEN-USASP2021039521

PATIENT
  Age: 67 Year
  Sex: Female
  Weight: 54 kg

DRUGS (3)
  1. FOSAMAX [Concomitant]
     Active Substance: ALENDRONATE SODIUM
  2. PROLIA [Suspect]
     Active Substance: DENOSUMAB
     Indication: OSTEOPOROSIS POSTMENOPAUSAL
     Dosage: 60 MILLIGRAM
     Route: 065
     Dates: start: 20201023
  3. FORTEO [Concomitant]
     Active Substance: TERIPARATIDE

REACTIONS (8)
  - Pruritus [Recovered/Resolved]
  - Product administered at inappropriate site [Unknown]
  - Fatigue [Unknown]
  - Pain [Recovered/Resolved]
  - Injury [Unknown]
  - Soft tissue inflammation [Not Recovered/Not Resolved]
  - Back pain [Unknown]
  - Fall [Unknown]

NARRATIVE: CASE EVENT DATE: 202010
